FAERS Safety Report 8518111-8 (Version None)
Quarter: 2012Q3

REPORT INFORMATION
  Report Type: 
  Country: None (occurrence: None)
  Receive Date: 20120712
  Receipt Date: 20120712
  Transmission Date: 20120928
  Serious: Yes (Hospitalization)
  Sender: FDA-Public Use
  Company Number: None

PATIENT
  Age: 83 Year
  Sex: Male
  Weight: 70.3 kg

DRUGS (1)
  1. XARELTO [Suspect]
     Indication: ATRIAL FIBRILLATION
     Dosage: 20MG DAILY PO
     Route: 048
     Dates: start: 20120401

REACTIONS (3)
  - GASTROINTESTINAL HAEMORRHAGE [None]
  - FEEDING TUBE COMPLICATION [None]
  - HAEMORRHAGE [None]
